FAERS Safety Report 10215160 (Version 1)
Quarter: 2014Q2

REPORT INFORMATION
  Report Type: Report from Study
  Country: MX (occurrence: MX)
  Receive Date: 20140603
  Receipt Date: 20140603
  Transmission Date: 20141212
  Serious: Yes (Other)
  Sender: FDA-Public Use
  Company Number: PHHY2014MX067768

PATIENT
  Age: 68 Year
  Sex: Male

DRUGS (2)
  1. DIOVAN [Suspect]
     Indication: HYPERTENSION
     Dosage: 1 DF (80 MG), DAILY
     Route: 048
  2. CEFTRIAXONA [Interacting]
     Dosage: UNK UKN, UNK

REACTIONS (8)
  - Diabetes mellitus [Not Recovered/Not Resolved]
  - Prostate cancer [Not Recovered/Not Resolved]
  - Kidney infection [Not Recovered/Not Resolved]
  - Escherichia infection [Not Recovered/Not Resolved]
  - Single functional kidney [Not Recovered/Not Resolved]
  - Drug interaction [Not Recovered/Not Resolved]
  - Skin disorder [Not Recovered/Not Resolved]
  - Drug hypersensitivity [Not Recovered/Not Resolved]
